FAERS Safety Report 9312032 (Version 1)
Quarter: 2013Q2

REPORT INFORMATION
  Report Type: Report from Study
  Country: AU (occurrence: AU)
  Receive Date: 20130528
  Receipt Date: 20130528
  Transmission Date: 20140414
  Serious: Yes (Life-Threatening, Other)
  Sender: FDA-Public Use
  Company Number: PHHY2013AU053409

PATIENT
  Age: 73 Year
  Sex: Female

DRUGS (3)
  1. ACLASTA [Suspect]
     Dosage: 5 MG, UNK
     Route: 042
     Dates: start: 20100626
  2. ACLASTA [Suspect]
     Dosage: 5 MG, UNK
     Route: 042
     Dates: start: 20110607
  3. ACLASTA [Suspect]
     Dosage: 5 MG, UNK
     Route: 042
     Dates: start: 20120528

REACTIONS (6)
  - Feeling abnormal [Recovered/Resolved with Sequelae]
  - Swollen tongue [Recovered/Resolved with Sequelae]
  - Pharyngeal oedema [Recovered/Resolved with Sequelae]
  - Lip swelling [Recovered/Resolved with Sequelae]
  - Joint swelling [Recovered/Resolved with Sequelae]
  - Urticaria [Recovered/Resolved with Sequelae]
